FAERS Safety Report 24896102 (Version 2)
Quarter: 2025Q1

REPORT INFORMATION
  Report Type: Spontaneous
  Country: BR (occurrence: BR)
  Receive Date: 20250128
  Receipt Date: 20250202
  Transmission Date: 20250408
  Serious: Yes (Life-Threatening)
  Sender: NOVARTIS
  Company Number: BR-002147023-NVSC2024BR229617

PATIENT
  Age: 61 Year
  Sex: Female
  Weight: 57 kg

DRUGS (5)
  1. KISQALI [Suspect]
     Active Substance: RIBOCICLIB
     Indication: Breast cancer
     Dosage: 3 DOSAGE FORM, QD (TABLETS) (FOR 21 DAYS WITH A 7-DAY BREAK) (63 TABLETS)
     Route: 065
     Dates: start: 202410
  2. KISQALI [Suspect]
     Active Substance: RIBOCICLIB
     Route: 065
  3. XGEVA [Concomitant]
     Active Substance: DENOSUMAB
     Indication: Bone disorder
     Route: 065
  4. SIBUTRAMINE [Concomitant]
     Active Substance: SIBUTRAMINE
     Indication: Product used for unknown indication
     Route: 065
  5. VINBLASTINE SULFATE [Concomitant]
     Active Substance: VINBLASTINE SULFATE
     Indication: Bone disorder
     Route: 058
     Dates: start: 202410

REACTIONS (4)
  - White blood cell count decreased [Recovering/Resolving]
  - Nausea [Recovered/Resolved]
  - Platelet count decreased [Recovering/Resolving]
  - Fatigue [Recovered/Resolved]

NARRATIVE: CASE EVENT DATE: 20241001
